FAERS Safety Report 8329689-1 (Version None)
Quarter: 2012Q2

REPORT INFORMATION
  Report Type: 
  Country: None (occurrence: None)
  Receive Date: 20120502
  Receipt Date: 20120430
  Transmission Date: 20120825
  Serious: Yes (Death, Congenital Anomaly)
  Sender: FDA-Public Use
  Company Number: US-GLAXOSMITHKLINE-A0975761A

PATIENT
  Sex: Female

DRUGS (2)
  1. PAXIL [Suspect]
     Indication: DEPRESSION
     Route: 064
  2. ZOLOFT [Suspect]
     Indication: DEPRESSION
     Route: 064

REACTIONS (2)
  - DEATH [None]
  - HEART DISEASE CONGENITAL [None]
